FAERS Safety Report 9050691 (Version 5)
Quarter: 2013Q3

REPORT INFORMATION
  Report Type: Spontaneous
  Country: US (occurrence: US)
  Receive Date: 20130205
  Receipt Date: 20130816
  Transmission Date: 20140515
  Serious: Yes (Hospitalization, Other)
  Sender: FDA-Public Use
  Company Number: US-009507513-2012SP021502

PATIENT
  Sex: Female
  Weight: 72.56 kg

DRUGS (2)
  1. NUVARING [Suspect]
     Indication: PRODUCT USED FOR UNKNOWN INDICATION
     Dosage: UNK
     Route: 067
     Dates: start: 200601, end: 201004
  2. NUVARING [Suspect]
     Dosage: UNK
     Route: 067
     Dates: start: 20070721, end: 20080623

REACTIONS (19)
  - Chest pain [Unknown]
  - Pulmonary embolism [Not Recovered/Not Resolved]
  - Pulmonary embolism [Unknown]
  - Exposure during pregnancy [Unknown]
  - Basedow^s disease [Unknown]
  - Pain in extremity [Unknown]
  - Haematuria [Recovered/Resolved]
  - Pyrexia [Unknown]
  - Lung infiltration [Unknown]
  - Pulmonary hypertension [Unknown]
  - Caesarean section [Unknown]
  - Blood product transfusion [Unknown]
  - Rash maculo-papular [Recovered/Resolved]
  - Diarrhoea [Unknown]
  - Anaemia [Unknown]
  - Liver function test abnormal [Recovering/Resolving]
  - Anxiety [Unknown]
  - International normalised ratio increased [Recovering/Resolving]
  - Coagulopathy [Recovering/Resolving]
